FAERS Safety Report 5366743-0 (Version None)
Quarter: 2007Q2

REPORT INFORMATION
  Report Type: 
  Country: None (occurrence: None)
  Receive Date: 20070622
  Receipt Date: 20060731
  Transmission Date: 20071010
  Serious: No
  Sender: FDA-Public Use
  Company Number: US-ASTRAZENECA-2006UW15323

PATIENT
  Age: 60 Year
  Sex: Female

DRUGS (4)
  1. RHINOCORT [Suspect]
     Indication: HYPERSENSITIVITY
     Route: 045
     Dates: start: 20060501
  2. AMOXICILLIN [Concomitant]
  3. BLOOD PRESSURE MEDICATION [Concomitant]
  4. CHOLESTEROL [Concomitant]

REACTIONS (1)
  - SINUS DISORDER [None]
